FAERS Safety Report 5316842-4 (Version None)
Quarter: 2007Q2

REPORT INFORMATION
  Report Type: 
  Country: None (occurrence: None)
  Receive Date: 20070501
  Receipt Date: 20070501
  Transmission Date: 20071010
  Serious: Yes (Hospitalization)
  Sender: FDA-Public Use
  Company Number: None

PATIENT
  Sex: Male
  Weight: 79.8331 kg

DRUGS (14)
  1. DOCETAXEL 80MG/2ML [Suspect]
     Indication: NON-SMALL CELL LUNG CANCER
     Dosage: 70.9MG IVPB
     Route: 040
     Dates: start: 20070418
  2. ZANTAC [Concomitant]
  3. CYMBALTA [Concomitant]
  4. XANAX [Concomitant]
  5. DECADRON [Concomitant]
  6. DOCETAXEL [Concomitant]
  7. RESTORIL [Concomitant]
  8. DEXAMETHASONE 0.5MG TAB [Concomitant]
  9. MIACLACIN [Concomitant]
  10. LACTULOSE [Concomitant]
  11. OXYCONTIN [Concomitant]
  12. PERCOCET [Concomitant]
  13. SENNA [Concomitant]
  14. ZOMETA [Concomitant]

REACTIONS (6)
  - DRUG INEFFECTIVE [None]
  - HAEMATEMESIS [None]
  - MALLORY-WEISS SYNDROME [None]
  - MEDICATION ERROR [None]
  - RETCHING [None]
  - VOMITING [None]
